FAERS Safety Report 7344547-7 (Version None)
Quarter: 2011Q1

REPORT INFORMATION
  Report Type: 
  Country: None (occurrence: None)
  Receive Date: 20110307
  Receipt Date: 20110307
  Transmission Date: 20110831
  Serious: Yes (Other)
  Sender: FDA-Public Use
  Company Number: None

PATIENT
  Age: 48 Year
  Sex: Male
  Weight: 75.2971 kg

DRUGS (3)
  1. VENLAFAXINE HCL [Suspect]
     Indication: ANXIETY
     Dosage: 37.5MG 3 X DAY PO
     Route: 048
     Dates: start: 20110110, end: 20110221
  2. VENLAFAXINE HCL [Suspect]
     Indication: MAJOR DEPRESSION
     Dosage: 37.5MG 3 X DAY PO
     Route: 048
     Dates: start: 20110110, end: 20110221
  3. VENLAFAXINE HCL [Suspect]
     Indication: POST-TRAUMATIC STRESS DISORDER
     Dosage: 37.5MG 3 X DAY PO
     Route: 048
     Dates: start: 20110110, end: 20110221

REACTIONS (14)
  - ANXIETY [None]
  - DIZZINESS [None]
  - HEADACHE [None]
  - IMPAIRED DRIVING ABILITY [None]
  - CONDITION AGGRAVATED [None]
  - BLOOD URINE PRESENT [None]
  - NERVOUS SYSTEM DISORDER [None]
  - MIGRAINE [None]
  - DEPRESSION [None]
  - EYE PAIN [None]
  - NAUSEA [None]
  - VOMITING [None]
  - DISORIENTATION [None]
  - STARING [None]
